FAERS Safety Report 15693739 (Version 3)
Quarter: 2019Q1

REPORT INFORMATION
  Report Type: Report from Study
  Country: US (occurrence: US)
  Receive Date: 20181206
  Receipt Date: 20190111
  Transmission Date: 20190417
  Serious: Yes (Hospitalization, Other)
  Sender: FDA-Public Use
  Company Number: US-BIOGEN-2018BI00665645

PATIENT
  Age: 49 Year
  Sex: Female

DRUGS (2)
  1. VANCOMYCIN [Suspect]
     Active Substance: VANCOMYCIN
     Indication: PRODUCT USED FOR UNKNOWN INDICATION
     Route: 065
     Dates: start: 20180928
  2. TECFIDERA [Suspect]
     Active Substance: DIMETHYL FUMARATE
     Indication: MULTIPLE SCLEROSIS
     Dosage: MAINTENANCE DOSE
     Route: 048

REACTIONS (8)
  - Intensive care unit delirium [Recovered/Resolved]
  - Pneumonia [Unknown]
  - Acute respiratory distress syndrome [Recovered/Resolved]
  - Nephropathy toxic [Recovered/Resolved]
  - Metabolic encephalopathy [Recovered/Resolved]
  - Pyrexia [Recovered/Resolved]
  - Pulmonary mass [Unknown]
  - Multiple sclerosis relapse [Recovered/Resolved]

NARRATIVE: CASE EVENT DATE: 2018
